FAERS Safety Report 4588422-X (Version None)
Quarter: 2005Q1

REPORT INFORMATION
  Report Type: 
  Country: None (occurrence: None)
  Receive Date: 20050207
  Receipt Date: 20050207
  Transmission Date: 20050727
  Serious: Yes (Other)
  Sender: FDA-Public Use
  Company Number: None

PATIENT
  Age: 52 Year
  Sex: Male
  Weight: 94.3482 kg

DRUGS (1)
  1. MYTUSSIN AC COUGH SYRUP, SUGAR-FREE, MGP PRODUCT CODE 8045 [Suspect]
     Indication: COUGH
     Dosage: 2 TSP  3-5 TIMES  , ORALLY
     Route: 048
     Dates: start: 20050120, end: 20050121

REACTIONS (1)
  - DRUG INEFFECTIVE [None]
